FAERS Safety Report 8246333-2 (Version None)
Quarter: 2012Q1

REPORT INFORMATION
  Report Type: 
  Country: None (occurrence: None)
  Receive Date: 20120330
  Receipt Date: 20120321
  Transmission Date: 20120608
  Serious: Yes (Hospitalization)
  Sender: FDA-Public Use
  Company Number: US-ABBOTT-12P-163-0917297-00

PATIENT
  Sex: Female
  Weight: 67.646 kg

DRUGS (6)
  1. XANAX [Concomitant]
     Indication: STRESS
  2. COLAZAL [Concomitant]
     Indication: CROHN'S DISEASE
  3. ZANTAC [Concomitant]
     Indication: GASTROOESOPHAGEAL REFLUX DISEASE
  4. ALLEGRA [Concomitant]
     Indication: HYPERSENSITIVITY
  5. ELAVIL [Concomitant]
     Indication: DEPRESSION
  6. HUMIRA [Suspect]
     Indication: CROHN'S DISEASE
     Dates: start: 20110301, end: 20120301

REACTIONS (7)
  - INCREASED UPPER AIRWAY SECRETION [None]
  - FEMALE GENITAL TRACT FISTULA [None]
  - HYPOTHYROIDISM [None]
  - COLITIS [None]
  - BACK PAIN [None]
  - MUSCLE SPASMS [None]
  - NAUSEA [None]
